FAERS Safety Report 9310378 (Version 1)
Quarter: 2013Q2

REPORT INFORMATION
  Report Type: Spontaneous
  Country: IT (occurrence: IT)
  Receive Date: 20130527
  Receipt Date: 20130527
  Transmission Date: 20140414
  Serious: Yes (Hospitalization)
  Sender: FDA-Public Use
  Company Number: IT-BRISTOL-MYERS SQUIBB COMPANY-18923813

PATIENT
  Age: 79 Year
  Sex: Female

DRUGS (11)
  1. COUMADIN TABS 5 MG [Suspect]
     Indication: ATRIAL FIBRILLATION
     Dosage: 1DF:1UNIT:INT ON 27-APR-2013
     Route: 048
     Dates: start: 20130101
  2. CALCITRIOL [Concomitant]
     Route: 048
  3. AUGMENTIN [Concomitant]
     Dosage: 1DF:3UNIT
     Route: 048
  4. CIPRALEX [Concomitant]
     Dosage: TAB
     Route: 048
  5. LEVOXACIN [Concomitant]
     Dosage: TAB
     Route: 048
  6. NEXIUM [Concomitant]
     Dosage: TAB
     Route: 048
  7. DILATREND [Concomitant]
     Dosage: TAB
     Route: 048
  8. LANOXIN [Concomitant]
     Dosage: TAB
     Route: 048
  9. LASIX [Concomitant]
     Dosage: TAB
     Route: 048
  10. EUTIROX [Concomitant]
     Dosage: TAB
     Route: 048
  11. DEURSIL [Concomitant]
     Dosage: CAPS
     Route: 048

REACTIONS (2)
  - Intra-abdominal haematoma [Unknown]
  - Hyponatraemia [Unknown]
